FAERS Safety Report 9417947 (Version 1)
Quarter: 2013Q3

REPORT INFORMATION
  Report Type: Spontaneous
  Country: US (occurrence: US)
  Receive Date: 20130724
  Receipt Date: 20130724
  Transmission Date: 20140515
  Serious: No
  Sender: FDA-Public Use
  Company Number: US-BAUSCH-BL-2012-001204

PATIENT
  Sex: Female

DRUGS (2)
  1. OPCON-A [Suspect]
     Indication: EYE PRURITUS
     Dosage: ONE DROP IN EACH EYE DAILY
     Route: 047
     Dates: start: 20120930, end: 20121002
  2. CICLOSPORIN [Concomitant]

REACTIONS (1)
  - Instillation site pain [Recovered/Resolved]
